FAERS Safety Report 9238631 (Version 1)
Quarter: 2013Q1

REPORT INFORMATION
  Report Type: Spontaneous
  Country: US (occurrence: None)
  Receive Date: 20121101
  Receipt Date: 20121101
  Transmission Date: 20140127
  Serious: No
  Sender: FDA-Public Use
  Company Number: 2012MZ000355

PATIENT
  Age: 39 Year
  Sex: Female

DRUGS (2)
  1. XEOMIN [Suspect]
     Indication: SKIN WRINKLING
     Dosage: 25 U; X1
     Dates: start: 20120308, end: 20120308
  2. WELLBUTRIN [Concomitant]

REACTIONS (4)
  - Therapeutic response decreased [None]
  - Facial pain [None]
  - Muscle spasms [None]
  - Off label use [None]
